FAERS Safety Report 11337597 (Version 1)
Quarter: 2015Q3

REPORT INFORMATION
  Report Type: Spontaneous
  Country: US (occurrence: US)
  Receive Date: 20150803
  Receipt Date: 20150803
  Transmission Date: 20151125
  Serious: No
  Sender: FDA-Public Use
  Company Number: US-ELI_LILLY_AND_COMPANY-US200909002920

PATIENT
  Age: 45 Year
  Sex: Female

DRUGS (4)
  1. OPIOIDS [Concomitant]
     Active Substance: UNSPECIFIED INGREDIENT
  2. ZYPREXA [Suspect]
     Active Substance: OLANZAPINE
     Dosage: 2.5 MG, DAILY (1/D)
  3. ZYPREXA [Suspect]
     Active Substance: OLANZAPINE
     Indication: AFFECTIVE DISORDER
     Dosage: 5 MG, DAILY (1/D)
     Dates: start: 200907
  4. ALCOHOL. [Concomitant]
     Active Substance: ALCOHOL

REACTIONS (2)
  - Sedation [Unknown]
  - Weight increased [Unknown]

NARRATIVE: CASE EVENT DATE: 200907
